FAERS Safety Report 8093248-9 (Version None)
Quarter: 2012Q1

REPORT INFORMATION
  Report Type: 
  Country: None (occurrence: None)
  Receive Date: 20120128
  Receipt Date: 20111007
  Transmission Date: 20120608
  Serious: No
  Sender: FDA-Public Use
  Company Number: US-ABBOTT-11P-163-0723772-00

PATIENT
  Sex: Female
  Weight: 62.198 kg

DRUGS (7)
  1. VICODIN [Concomitant]
     Indication: PAIN
     Dosage: 10/325 MG PRN
     Route: 048
  2. LORAZEPAM [Concomitant]
     Indication: ANXIETY
     Dosage: PRN
     Route: 048
  3. HUMIRA [Suspect]
     Indication: PSORIATIC ARTHROPATHY
     Route: 058
     Dates: start: 20110423
  4. ADDERALL 5 [Concomitant]
     Indication: ATTENTION DEFICIT/HYPERACTIVITY DISORDER
     Route: 048
  5. ACIPHEX [Concomitant]
     Indication: GASTROOESOPHAGEAL REFLUX DISEASE
  6. CELEXA [Concomitant]
     Indication: DEPRESSION
     Route: 048
  7. HUMIRA [Suspect]
     Dates: start: 20110507, end: 20110601

REACTIONS (15)
  - URINARY TRACT INFECTION [None]
  - NIGHT SWEATS [None]
  - PSORIATIC ARTHROPATHY [None]
  - FLUID RETENTION [None]
  - ARTHRALGIA [None]
  - EAR INFECTION FUNGAL [None]
  - SWELLING FACE [None]
  - CANDIDIASIS [None]
  - INFECTION [None]
  - KIDNEY INFECTION [None]
  - FUNGAL INFECTION [None]
  - RASH [None]
  - PSORIASIS [None]
  - PAIN IN EXTREMITY [None]
  - MUSCLE SPASMS [None]
